FAERS Safety Report 24696973 (Version 3)
Quarter: 2025Q1

REPORT INFORMATION
  Report Type: Spontaneous
  Country: US (occurrence: US)
  Receive Date: 20241204
  Receipt Date: 20250117
  Transmission Date: 20250408
  Serious: No
  Sender: PFIZER
  Company Number: US-PFIZER INC-202400311450

PATIENT
  Age: 62 Year
  Sex: Male

DRUGS (1)
  1. NYVEPRIA [Suspect]
     Active Substance: PEGFILGRASTIM-APGF
     Indication: Colon cancer

REACTIONS (4)
  - Drug dose omission by device [Unknown]
  - Product physical issue [Unknown]
  - Device defective [Unknown]
  - Device deployment issue [Unknown]
